FAERS Safety Report 4282594-2 (Version None)
Quarter: 2004Q1

REPORT INFORMATION
  Report Type: 
  Country: None (occurrence: None)
  Receive Date: 20040130
  Receipt Date: 20020709
  Transmission Date: 20041129
  Serious: No
  Sender: FDA-Public Use
  Company Number: US-BRISTOL-MYERS SQUIBB COMPANY-11942653

PATIENT
  Age: 45 Year
  Sex: Male
  Weight: 99 kg

DRUGS (9)
  1. SERZONE [Suspect]
     Indication: DEPRESSION
     Dosage: DISCONTINUED THREE TO FOUR MONTHS AGO
     Route: 048
     Dates: start: 19990101, end: 20020101
  2. BUSPAR [Concomitant]
     Indication: ANXIETY
  3. OXAZEPAM [Concomitant]
  4. EFFEXOR [Concomitant]
  5. SONATA [Concomitant]
  6. ATIVAN [Concomitant]
  7. TRAZODONE HCL [Concomitant]
  8. REMERON [Concomitant]
  9. AMBIEN [Concomitant]

REACTIONS (5)
  - ABDOMINAL PAIN UPPER [None]
  - DYSGEUSIA [None]
  - HEADACHE [None]
  - MYALGIA [None]
  - NAUSEA [None]
